FAERS Safety Report 24976848 (Version 1)
Quarter: 2025Q1

REPORT INFORMATION
  Report Type: Report from Study
  Country: CL (occurrence: CL)
  Receive Date: 20250217
  Receipt Date: 20250217
  Transmission Date: 20250409
  Serious: No
  Sender: ALEXION PHARMACEUTICALS
  Company Number: CL-AstraZeneca-2020SE72375

PATIENT
  Age: 80 Year

DRUGS (1)
  1. NEXIUM [Suspect]
     Active Substance: ESOMEPRAZOLE MAGNESIUM
     Indication: Barrett^s oesophagus
     Dosage: 40 MILLIGRAM, QD

REACTIONS (1)
  - Hypoacusis [Not Recovered/Not Resolved]
